FAERS Safety Report 8960680 (Version 1)
Quarter: 2012Q4

REPORT INFORMATION
  Report Type: 
  Country: US (occurrence: US)
  Receive Date: 20121213
  Receipt Date: 20121213
  Transmission Date: 20130627
  Serious: No
  Sender: FDA-Public Use
  Company Number: US-009507513-1212USA002958

PATIENT
  Sex: Female

DRUGS (3)
  1. VICTRELIS [Suspect]
     Indication: HEPATITIS C
     Dosage: UNK, tid
     Route: 048
     Dates: start: 20120628
  2. RIBAPAK [Concomitant]
     Dosage: 600 mg, bid
     Dates: start: 20120628
  3. PEGASYS [Concomitant]
     Dosage: 180 Microgram, qw
     Dates: start: 20120628

REACTIONS (2)
  - Pruritus generalised [Unknown]
  - Muscular weakness [Unknown]
